FAERS Safety Report 9617181 (Version 4)
Quarter: 2013Q4

REPORT INFORMATION
  Report Type: Spontaneous
  Country: IT (occurrence: IT)
  Receive Date: 20131011
  Receipt Date: 20131106
  Transmission Date: 20140711
  Serious: Yes (Hospitalization)
  Sender: FDA-Public Use
  Company Number: IT-TEVA-436285ISR

PATIENT
  Age: 71 Year
  Sex: Male

DRUGS (8)
  1. CISPLATINO TEVA [Suspect]
     Indication: LUNG NEOPLASM MALIGNANT
     Dosage: 80 MILLIGRAM DAILY; CONCENTRATE FOR SOLUTION FOR INFUSION
     Route: 041
     Dates: start: 20130814, end: 20130814
  2. NAVELBINE [Suspect]
     Indication: LUNG NEOPLASM MALIGNANT
     Dosage: 40 MILLIGRAM DAILY; CONCENTRATE FOR SOLUTION FOR INFUSION
     Route: 041
     Dates: start: 20130814, end: 20130814
  3. TAMSULOSIN CLORIDRATO [Concomitant]
  4. CLEXANE T 6000IU/0.6ML [Concomitant]
     Dosage: INJECTABLE SOLUTION FOR SUBCUTANEOUS USE
  5. ZOFRAN [Concomitant]
  6. PLASIL [Concomitant]
  7. MOVICOL [Concomitant]
  8. TACHIPIRINA [Concomitant]
     Indication: PAIN

REACTIONS (1)
  - Febrile neutropenia [Recovered/Resolved]
